FAERS Safety Report 22147778 (Version 1)
Quarter: 2023Q1

REPORT INFORMATION
  Report Type: Spontaneous
  Country: US (occurrence: None)
  Receive Date: 20230327
  Receipt Date: 20230327
  Transmission Date: 20230417
  Serious: Yes (Other)
  Sender: FDA-Public Use
  Company Number: None

PATIENT
  Age: 32 Year
  Sex: Female
  Weight: 84.37 kg

DRUGS (10)
  1. COMPAZINE [Suspect]
     Active Substance: PROCHLORPERAZINE MALEATE
     Indication: Migraine
     Dosage: FREQUENCY : AS NEEDED;?
     Route: 048
     Dates: start: 20190725
  2. ZOFRAN [Suspect]
     Active Substance: ONDANSETRON HYDROCHLORIDE
     Indication: Migraine
     Dosage: FREQUENCY : AS NEEDED;?
     Route: 048
     Dates: start: 202106
  3. KEPPRA [Concomitant]
     Active Substance: LEVETIRACETAM
  4. LAMICTAL [Concomitant]
     Active Substance: LAMOTRIGINE
  5. SYMBICORT [Concomitant]
     Active Substance: BUDESONIDE\FORMOTEROL FUMARATE DIHYDRATE
  6. ALBUTEROL [Concomitant]
     Active Substance: ALBUTEROL
  7. KLONOPIN [Concomitant]
     Active Substance: CLONAZEPAM
  8. SERTRALINE [Concomitant]
     Active Substance: SERTRALINE HYDROCHLORIDE
  9. VISTARIL [Concomitant]
     Active Substance: HYDROXYZINE PAMOATE
  10. VITAMINS [Concomitant]
     Active Substance: VITAMINS

REACTIONS (2)
  - Polyhydramnios [None]
  - Exposure during pregnancy [None]

NARRATIVE: CASE EVENT DATE: 20230126
